FAERS Safety Report 4355447-9 (Version None)
Quarter: 2004Q2

REPORT INFORMATION
  Report Type: 
  Country: None (occurrence: None)
  Receive Date: 20040505
  Receipt Date: 20040423
  Transmission Date: 20050107
  Serious: Yes (Life-Threatening)
  Sender: FDA-Public Use
  Company Number: USA-2004-0014846

PATIENT
  Age: 42 Year
  Sex: Female

DRUGS (4)
  1. CEFDITOREN PIVOXIL (SIMILAR TO NDA 21-222) (CEFDITOREN PIVOXIL) [Suspect]
     Indication: BRONCHITIS ACUTE
     Dosage: 100 MG, ORAL
     Route: 048
     Dates: start: 20040419, end: 20040419
  2. LOXONIN (LOXOPROFEN SODIUM) [Concomitant]
  3. MUCODYNE (CARBOCISTEINE) [Concomitant]
  4. DASEN (SERRAPEPTASE) [Concomitant]

REACTIONS (1)
  - ASTHMA [None]
